FAERS Safety Report 6610537-2 (Version None)
Quarter: 2010Q1

REPORT INFORMATION
  Report Type: 
  Country: None (occurrence: None)
  Receive Date: 20100302
  Receipt Date: 20100218
  Transmission Date: 20100710
  Serious: Yes (Life-Threatening, Hospitalization, Other)
  Sender: FDA-Public Use
  Company Number: US-JNJCH-2009031684

PATIENT
  Age: 1 Month
  Sex: Male
  Weight: 3.9 kg

DRUGS (1)
  1. ASPIRIN [Suspect]
     Indication: DRUG USE FOR UNKNOWN INDICATION
     Dosage: TEXT:5.4 GRAMS IN 3 DAYS
     Route: 048

REACTIONS (5)
  - IATROGENIC INJURY [None]
  - LISTLESS [None]
  - OVERDOSE [None]
  - THERAPEUTIC AGENT TOXICITY [None]
  - WRONG DRUG ADMINISTERED [None]
